FAERS Safety Report 4476258-X (Version None)
Quarter: 2004Q3

REPORT INFORMATION
  Report Type: 
  Country: None (occurrence: None)
  Receive Date: 20040923
  Receipt Date: 20040719
  Transmission Date: 20050211
  Serious: No
  Sender: FDA-Public Use
  Company Number: USA040773073

PATIENT
  Age: 65 Year
  Sex: Female

DRUGS (7)
  1. FORTEO [Suspect]
     Indication: OSTEOPOROSIS
     Dates: start: 20040501
  2. NEXIUM [Concomitant]
  3. OXYCONTIN [Concomitant]
  4. ZOLOFT [Concomitant]
  5. BEXTRA [Concomitant]
  6. CELEBREX [Concomitant]
  7. OXYCODONE AND ACETAMINOPHEN [Concomitant]

REACTIONS (3)
  - EXOSTOSIS [None]
  - INJECTION SITE HAEMORRHAGE [None]
  - INJECTION SITE PAIN [None]
